FAERS Safety Report 4637454-1 (Version None)
Quarter: 2005Q2

REPORT INFORMATION
  Report Type: 
  Country: None (occurrence: None)
  Receive Date: 20050325
  Receipt Date: 20041207
  Transmission Date: 20051028
  Serious: No
  Sender: FDA-Public Use
  Company Number: USA041285489

PATIENT
  Age: 72 Year
  Sex: Female
  Weight: 55 kg

DRUGS (8)
  1. FORTEO [Suspect]
     Indication: OSTEOPOROSIS
     Dosage: 20 UG/1 DAY
     Dates: start: 20041110, end: 20041205
  2. THYROID SUPPLEMENT [Concomitant]
  3. ATIVAN [Concomitant]
  4. ACIPHEX [Concomitant]
  5. CALCIUM MAGNESIUM CITRAMATE [Concomitant]
  6. MULTIVITAMIN [Concomitant]
  7. FOLIC ACID [Concomitant]
  8. VITAMIN B-12 [Concomitant]

REACTIONS (5)
  - ABNORMAL FAECES [None]
  - COUGH [None]
  - FEELING ABNORMAL [None]
  - HEART RATE IRREGULAR [None]
  - INJECTION SITE ERYTHEMA [None]
